FAERS Safety Report 19270264 (Version 1)
Quarter: 2021Q2

REPORT INFORMATION
  Report Type: Spontaneous
  Country: US (occurrence: US)
  Receive Date: 20210518
  Receipt Date: 20210518
  Transmission Date: 20210717
  Serious: No
  Sender: FDA-Public Use
  Company Number: None

PATIENT
  Age: 73 Year
  Sex: Male
  Weight: 99.9 kg

DRUGS (14)
  1. ASPIRIN 81 [Concomitant]
     Active Substance: ASPIRIN
  2. SPIRONOLACTONE. [Concomitant]
     Active Substance: SPIRONOLACTONE
  3. ABIRATERONE. [Suspect]
     Active Substance: ABIRATERONE ACETATE
     Indication: PROSTATE CANCER
     Route: 048
     Dates: start: 20210415
  4. ATENOLOL. [Concomitant]
     Active Substance: ATENOLOL
  5. LOSARTAN POTASSIUM. [Concomitant]
     Active Substance: LOSARTAN POTASSIUM
  6. LUPRON DEPOT (1?MONTH) [Concomitant]
  7. MULTIVITAMIN ADULT [Concomitant]
  8. PREDNISONE. [Concomitant]
     Active Substance: PREDNISONE
  9. ROSUVASTATIN CALCIUM. [Concomitant]
     Active Substance: ROSUVASTATIN CALCIUM
  10. CALCIUM CARBONATE?VITAMIN D [Concomitant]
     Active Substance: CALCIUM CARBONATE\VITAMIN D
  11. CATAPRES?TTS [Concomitant]
     Active Substance: CLONIDINE
  12. NITROSTAT [Concomitant]
     Active Substance: NITROGLYCERIN
  13. AMLODIPINE BESYLATE. [Concomitant]
     Active Substance: AMLODIPINE BESYLATE
  14. ISOSORBIDE DINITRATE. [Concomitant]
     Active Substance: ISOSORBIDE DINITRATE

REACTIONS (1)
  - Prostatic specific antigen increased [None]

NARRATIVE: CASE EVENT DATE: 20210517
